FAERS Safety Report 7364568-8 (Version None)
Quarter: 2011Q1

REPORT INFORMATION
  Report Type: 
  Country: None (occurrence: None)
  Receive Date: 20110321
  Receipt Date: 20110222
  Transmission Date: 20110831
  Serious: No
  Sender: FDA-Public Use
  Company Number: US-B.I. PHARMACEUTICALS,INC./RIDGEFIELD-2011-BP-06526BP

PATIENT
  Sex: Male

DRUGS (8)
  1. PRADAXA [Suspect]
     Indication: ATRIAL FIBRILLATION
     Dosage: 300 MG
     Route: 048
     Dates: start: 20110221
  2. CPAP MACHINE [Concomitant]
     Indication: SLEEP APNOEA SYNDROME
  3. TOPROL-XL [Concomitant]
     Indication: ATRIAL FIBRILLATION
  4. ALLOPURINOL [Concomitant]
     Indication: GOUT
  5. LASIX [Concomitant]
     Indication: FLUID RETENTION
  6. POTASSIUM CHLORIDE [Concomitant]
     Indication: PROPHYLAXIS
  7. IMDUR [Concomitant]
     Indication: CARDIAC DISORDER
  8. MULTAQ [Concomitant]
     Indication: ATRIAL FIBRILLATION

REACTIONS (2)
  - DYSURIA [None]
  - FLUID RETENTION [None]
